FAERS Safety Report 6316208-4 (Version None)
Quarter: 2009Q3

REPORT INFORMATION
  Report Type: 
  Country: None (occurrence: None)
  Receive Date: 20090819
  Receipt Date: 20090819
  Transmission Date: 20100115
  Serious: No
  Sender: FDA-Public Use
  Company Number: None

PATIENT
  Sex: Male

DRUGS (1)
  1. LISINOPRIL [Suspect]
     Dosage: 10 MILLIGRAMS
     Dates: start: 20090614, end: 20090712

REACTIONS (3)
  - DYSPNOEA EXERTIONAL [None]
  - HEART RATE DECREASED [None]
  - PRODUCT SUBSTITUTION ISSUE [None]
